FAERS Safety Report 16660229 (Version 2)
Quarter: 2019Q3

REPORT INFORMATION
  Report Type: Spontaneous
  Country: ME (occurrence: ME)
  Receive Date: 20190802
  Receipt Date: 20190809
  Transmission Date: 20191004
  Serious: Yes (Hospitalization, Other)
  Sender: FDA-Public Use
  Company Number: ME-SA-2019SA204187

PATIENT
  Age: 29 Year
  Sex: Female

DRUGS (6)
  1. LEMTRADA [Suspect]
     Active Substance: ALEMTUZUMAB
     Indication: MULTIPLE SCLEROSIS
     Dosage: 12 MG
     Route: 041
     Dates: start: 201811
  2. LEMTRADA [Suspect]
     Active Substance: ALEMTUZUMAB
     Dosage: UNK
     Route: 041
     Dates: start: 201903
  3. GABAGAMMA [Concomitant]
     Active Substance: GABAPENTIN
     Indication: PARAESTHESIA
     Dosage: UNK UNK, UNK
     Route: 065
  4. GABAGAMMA [Concomitant]
     Active Substance: GABAPENTIN
     Indication: NEURALGIA
  5. LYRICA [Concomitant]
     Active Substance: PREGABALIN
     Indication: PARAESTHESIA
  6. LYRICA [Concomitant]
     Active Substance: PREGABALIN
     Indication: NEURALGIA
     Dosage: UNK UNK, UNK
     Route: 065

REACTIONS (7)
  - Contusion [Unknown]
  - Menorrhagia [Unknown]
  - Dysphagia [Unknown]
  - Haematoma [Unknown]
  - Urinary retention [Unknown]
  - Multiple sclerosis relapse [Unknown]
  - Urinary incontinence [Unknown]

NARRATIVE: CASE EVENT DATE: 2019
